FAERS Safety Report 7747765-9 (Version None)
Quarter: 2011Q3

REPORT INFORMATION
  Report Type: 
  Country: None (occurrence: None)
  Receive Date: 20110913
  Receipt Date: 20110901
  Transmission Date: 20111222
  Serious: Yes (Other)
  Sender: FDA-Public Use
  Company Number: US-ROCHE-799049

PATIENT

DRUGS (1)
  1. AVASTIN [Suspect]
     Indication: EYE DISORDER
     Dosage: DOSE: REPORTED AS 3.75 MG (0.15 ML)
     Route: 031
     Dates: start: 20110812

REACTIONS (4)
  - BLINDNESS [None]
  - EYE INFLAMMATION [None]
  - EYE PAIN [None]
  - PRODUCT QUALITY ISSUE [None]
